FAERS Safety Report 7364643-8 (Version None)
Quarter: 2011Q1

REPORT INFORMATION
  Report Type: 
  Country: None (occurrence: None)
  Receive Date: 20110321
  Receipt Date: 20110308
  Transmission Date: 20110831
  Serious: Yes (Hospitalization)
  Sender: FDA-Public Use
  Company Number: US-JNJFOC-20101002757

PATIENT
  Sex: Female
  Weight: 44.8 kg

DRUGS (9)
  1. CLINDAMYCIN [Concomitant]
  2. METRONIDAZOLE [Concomitant]
  3. RIFAXIMIN [Concomitant]
  4. LO/OVRAL [Concomitant]
  5. INFLIXIMAB, RECOMBINANT [Suspect]
     Indication: CROHN'S DISEASE
     Route: 042
  6. INFLIXIMAB, RECOMBINANT [Suspect]
     Route: 042
  7. MULTI-VITAMINS [Concomitant]
  8. CIMZIA [Concomitant]
  9. ACETAMINOPHEN [Concomitant]

REACTIONS (5)
  - ILEAL STENOSIS [None]
  - ABDOMINAL ABSCESS [None]
  - NAUSEA [None]
  - ABDOMINAL PAIN [None]
  - CONVULSION [None]
